FAERS Safety Report 12904581 (Version 1)
Quarter: 2016Q4

REPORT INFORMATION
  Report Type: Spontaneous
  Country: US (occurrence: US)
  Receive Date: 20161102
  Receipt Date: 20161102
  Transmission Date: 20170207
  Serious: Yes (Other)
  Sender: FDA-Public Use
  Company Number: US-BAYER-2016-208095

PATIENT
  Age: 16 Year
  Sex: Male
  Weight: 77.98 kg

DRUGS (1)
  1. CORICIDIN HBP COUGH AND COLD [Suspect]
     Active Substance: CHLORPHENIRAMINE MALEATE\DEXTROMETHORPHAN HYDROBROMIDE
     Dosage: 36 DF, ONCE

REACTIONS (3)
  - Drug dependence [Unknown]
  - Intentional overdose [Unknown]
  - Drug abuse [None]

NARRATIVE: CASE EVENT DATE: 20161024
